FAERS Safety Report 12629443 (Version 1)
Quarter: 2016Q3

REPORT INFORMATION
  Report Type: Spontaneous
  Country: US (occurrence: None)
  Receive Date: 20160805
  Receipt Date: 20160805
  Transmission Date: 20161109
  Serious: No
  Sender: FDA-Public Use
  Company Number: None

PATIENT
  Age: 28 Year
  Sex: Female

DRUGS (1)
  1. HUMIRA [Suspect]
     Active Substance: ADALIMUMAB
     Indication: COLITIS ULCERATIVE
     Dosage: 40MG/0.8ML EVERY 7 DAYS SUBCUTANEOUSLY
     Route: 058
     Dates: start: 20141208, end: 20160531

REACTIONS (2)
  - Psoriasis [None]
  - Rash generalised [None]

NARRATIVE: CASE EVENT DATE: 20160531
